FAERS Safety Report 8556051-9 (Version None)
Quarter: 2012Q3

REPORT INFORMATION
  Report Type: 
  Country: None (occurrence: None)
  Receive Date: 20120801
  Receipt Date: 20120719
  Transmission Date: 20120928
  Serious: Yes (Disabling, Other)
  Sender: FDA-Public Use
  Company Number: GB-ACCORD-014182

PATIENT
  Age: 63 Year
  Sex: Female
  Weight: 100.8 kg

DRUGS (4)
  1. DEXAMETHASONE [Concomitant]
  2. HERCEPTIN [Concomitant]
  3. DOCETAXEL [Suspect]
     Indication: BREAST CANCER
     Dosage: CYCLE 2
     Route: 042
     Dates: end: 20120524
  4. TINZAPARIN [Concomitant]

REACTIONS (2)
  - PAIN [None]
  - NECROTISING FASCIITIS [None]
